FAERS Safety Report 8263269-1 (Version None)
Quarter: 2012Q2

REPORT INFORMATION
  Report Type: 
  Country: None (occurrence: None)
  Receive Date: 20120405
  Receipt Date: 20120330
  Transmission Date: 20120825
  Serious: Yes (Other)
  Sender: FDA-Public Use
  Company Number: JP-PFIZER INC-2012075234

PATIENT
  Age: 68 Year
  Sex: Female

DRUGS (3)
  1. LYRICA [Suspect]
     Dosage: 25 MG, 2X/DAY
     Dates: start: 20120326
  2. LYRICA [Suspect]
     Dosage: 75 MG, 2X/DAY
  3. VIVIANT [Concomitant]
     Dosage: UNK
     Dates: start: 20101201

REACTIONS (7)
  - RENAL IMPAIRMENT [None]
  - OEDEMA [None]
  - HAEMORRHAGE [None]
  - PROTEINURIA [None]
  - BLOOD POTASSIUM DECREASED [None]
  - ANAEMIA [None]
  - CARDIAC FAILURE [None]
